FAERS Safety Report 15812703 (Version 1)
Quarter: 2018Q4

REPORT INFORMATION
  Report Type: Spontaneous
  Country: US (occurrence: US)
  Receive Date: 20181214
  Receipt Date: 20181214
  Transmission Date: 20190205
  Serious: No
  Sender: FDA-Public Use
  Company Number: None

PATIENT
  Age: 44 Year
  Sex: Male
  Weight: 100.24 kg

DRUGS (2)
  1. RASUVO [Suspect]
     Active Substance: METHOTREXATE SODIUM
     Indication: SYSTEMIC LUPUS ERYTHEMATOSUS
  2. RASUVO [Suspect]
     Active Substance: METHOTREXATE SODIUM
     Indication: CONNECTIVE TISSUE DISORDER
     Dosage: ?          OTHER DOSE:20MG (0.4ML) ;?
     Route: 058
     Dates: start: 201709

REACTIONS (1)
  - Renal impairment [None]
